FAERS Safety Report 23099798 (Version 2)
Quarter: 2024Q2

REPORT INFORMATION
  Report Type: Report from Study
  Country: US (occurrence: US)
  Receive Date: 20231024
  Receipt Date: 20240521
  Transmission Date: 20240715
  Serious: Yes (Other)
  Sender: FDA-Public Use
  Company Number: US-MYLANLABS-2023M1103561

PATIENT
  Sex: Female
  Weight: 63.5 kg

DRUGS (2)
  1. GLATIRAMER ACETATE [Suspect]
     Active Substance: GLATIRAMER ACETATE
     Indication: Relapsing-remitting multiple sclerosis
     Dosage: 40 MILLIGRAM, 3XW
     Route: 058
  2. GLATIRAMER ACETATE [Suspect]
     Active Substance: GLATIRAMER ACETATE
     Indication: Multiple sclerosis

REACTIONS (13)
  - Multiple sclerosis [Not Recovered/Not Resolved]
  - Blood glucose decreased [Unknown]
  - Tremor [Unknown]
  - Malaise [Unknown]
  - Mydriasis [Unknown]
  - Pain [Unknown]
  - Pain in extremity [Unknown]
  - Asthenia [Unknown]
  - Eye disorder [Unknown]
  - Injection site pain [Unknown]
  - Dizziness [Unknown]
  - Gait disturbance [Unknown]
  - Drug ineffective [Unknown]
